FAERS Safety Report 7049316-3 (Version None)
Quarter: 2010Q4

REPORT INFORMATION
  Report Type: 
  Country: None (occurrence: None)
  Receive Date: 20101018
  Receipt Date: 20091026
  Transmission Date: 20110411
  Serious: No
  Sender: FDA-Public Use
  Company Number: A0813402A

PATIENT
  Age: 49 Year
  Sex: Female

DRUGS (6)
  1. CEFTIN [Suspect]
     Route: 048
     Dates: start: 19900101, end: 19900101
  2. LOVAZA [Suspect]
     Route: 048
     Dates: start: 20080901, end: 20080901
  3. SYNTHROID [Concomitant]
  4. LEXAPRO [Concomitant]
  5. ACTONEL [Concomitant]
  6. VIVELLE [Concomitant]

REACTIONS (5)
  - DIARRHOEA [None]
  - DRUG HYPERSENSITIVITY [None]
  - DYSKINESIA [None]
  - PRURITUS [None]
  - SCRATCH [None]
